FAERS Safety Report 25364301 (Version 1)
Quarter: 2025Q2

REPORT INFORMATION
  Report Type: Spontaneous
  Country: JP (occurrence: JP)
  Receive Date: 20250527
  Receipt Date: 20250527
  Transmission Date: 20250716
  Serious: Yes (Other)
  Sender: BAYER HEALTHCARE PHARMACEUTICALS INC.
  Company Number: JP-BAYER-2025A055834

PATIENT
  Age: 79 Year
  Sex: Female
  Weight: 52 kg

DRUGS (10)
  1. KERENDIA [Suspect]
     Active Substance: FINERENONE
     Dosage: 10 MG, OM
     Route: 048
     Dates: start: 20250404, end: 20250416
  2. MAGNESIUM OXIDE [Concomitant]
     Active Substance: MAGNESIUM OXIDE
  3. ROSUVASTATIN [Concomitant]
     Active Substance: ROSUVASTATIN
  4. AMLODIPINE BESYLATE\AZILSARTAN [Concomitant]
     Active Substance: AMLODIPINE BESYLATE\AZILSARTAN
  5. ESOMEPRAZOLE [Concomitant]
     Active Substance: ESOMEPRAZOLE
  6. AMLODIPINE [Concomitant]
     Active Substance: AMLODIPINE BESYLATE
  7. AMITIZA [Concomitant]
     Active Substance: LUBIPROSTONE
  8. MOVICOL [Concomitant]
     Active Substance: POLYETHYLENE GLYCOL 3350\POTASSIUM CHLORIDE\SODIUM BICARBONATE\SODIUM CHLORIDE
  9. Heparinoid [Concomitant]
  10. FUSIDATE SODIUM [Concomitant]
     Active Substance: FUSIDATE SODIUM

REACTIONS (4)
  - Nausea [Recovered/Resolved]
  - Hypoaesthesia oral [Recovered/Resolved]
  - Decreased appetite [Recovered/Resolved]
  - Taste disorder [None]

NARRATIVE: CASE EVENT DATE: 20250416
